FAERS Safety Report 5222042-9 (Version None)
Quarter: 2007Q1

REPORT INFORMATION
  Report Type: 
  Country: None (occurrence: None)
  Receive Date: 20070129
  Receipt Date: 20060418
  Transmission Date: 20070707
  Serious: No
  Sender: FDA-Public Use
  Company Number: US-GLAXOSMITHKLINE-A0602196A

PATIENT
  Sex: Male

DRUGS (2)
  1. BUPROPION HCL [Suspect]
     Indication: ANXIETY
     Dosage: 75MG TWICE PER DAY
     Route: 048
     Dates: start: 20060401, end: 20060411
  2. ADVIL [Concomitant]

REACTIONS (13)
  - BACK PAIN [None]
  - DIZZINESS [None]
  - HEADACHE [None]
  - ILL-DEFINED DISORDER [None]
  - IMMOBILE [None]
  - INSOMNIA [None]
  - LABYRINTHITIS [None]
  - MIDDLE INSOMNIA [None]
  - MYALGIA [None]
  - NECK PAIN [None]
  - NYSTAGMUS [None]
  - PARAESTHESIA [None]
  - PHOTOSENSITIVITY REACTION [None]
